FAERS Safety Report 7737242-3 (Version None)
Quarter: 2011Q3

REPORT INFORMATION
  Report Type: 
  Country: None (occurrence: None)
  Receive Date: 20110908
  Receipt Date: 20110831
  Transmission Date: 20111222
  Serious: Yes (Hospitalization)
  Sender: FDA-Public Use
  Company Number: US-JNJFOC-20110901734

PATIENT
  Sex: Female
  Weight: 72.3 kg

DRUGS (8)
  1. PROBIOTICS [Concomitant]
  2. MIRALAX [Concomitant]
  3. PRILOSEC [Concomitant]
  4. REMICADE [Suspect]
     Indication: INFLAMMATORY BOWEL DISEASE
     Route: 042
     Dates: start: 20070101, end: 20070410
  5. OTHER THERAPEUTIC PRODUCT UNSPECIFIED [Concomitant]
  6. CIPROFLOXACIN [Concomitant]
  7. WELLBUTRIN [Concomitant]
  8. CELEXA [Concomitant]

REACTIONS (1)
  - DEPRESSION [None]
